FAERS Safety Report 19643107 (Version 4)
Quarter: 2021Q3

REPORT INFORMATION
  Report Type: Report from Study
  Country: CA (occurrence: CA)
  Receive Date: 20210730
  Receipt Date: 20210831
  Transmission Date: 20211014
  Serious: Yes (Death, Hospitalization, Other)
  Sender: FDA-Public Use
  Company Number: NVSC2021CA059024

PATIENT
  Sex: Female

DRUGS (1)
  1. REVOLADE [Suspect]
     Active Substance: ELTROMBOPAG OLAMINE
     Indication: IMMUNE THROMBOCYTOPENIA
     Dosage: 50 MG, QD
     Route: 048
     Dates: start: 20201202

REACTIONS (6)
  - Thrombocytopenia [Unknown]
  - Pneumonia [Fatal]
  - Sepsis [Fatal]
  - Cholangitis [Fatal]
  - Haemorrhage [Unknown]
  - Platelet count decreased [Unknown]
